FAERS Safety Report 17011920 (Version 1)
Quarter: 2019Q4

REPORT INFORMATION
  Report Type: Spontaneous
  Country: DE (occurrence: DE)
  Receive Date: 20191108
  Receipt Date: 20191108
  Transmission Date: 20200122
  Serious: Yes (Hospitalization, Congenital Anomaly, Other)
  Sender: FDA-Public Use
  Company Number: DE-MYLANLABS-00P-062-0737931-00

PATIENT
  Age: 12 Year
  Sex: Male

DRUGS (7)
  1. TRIMIPRAMINE [Suspect]
     Active Substance: TRIMIPRAMINE
     Indication: PRODUCT USED FOR UNKNOWN INDICATION
     Dosage: 25 MILLIGRAM, QD (25 MG, QD)
  2. FLUVOXAMINE [Suspect]
     Active Substance: FLUVOXAMINE
     Indication: PRODUCT USED FOR UNKNOWN INDICATION
     Dosage: DAILY DOSE: 25 MG. FREQUENCY:UNKNOWN
     Route: 065
  3. TRIMIPRAMINE [Suspect]
     Active Substance: TRIMIPRAMINE
     Dosage: 50 MILLIGRAM, QD (50 UNK)
  4. TIAPRIDEX [Suspect]
     Active Substance: TIAPRIDE
     Indication: PRODUCT USED FOR UNKNOWN INDICATION
     Dosage: 300 MILLIGRAM, QD (300 MG, QD FOR SEVERAL MONTHS)
  5. FLUVOXAMINE [Suspect]
     Active Substance: FLUVOXAMINE
     Dosage: DAILY DOSE: 50 MG. FREQUENCY:UNKNOWN
     Route: 065
  6. PAROXETINE. [Suspect]
     Active Substance: PAROXETINE
     Indication: DEPRESSION
     Dosage: 10 MILLIGRAM, QD (10 MG, QD IN THE MORNING)
  7. FLUVOXAMINE [Suspect]
     Active Substance: FLUVOXAMINE
     Dosage: 25 MILLIGRAM, QD (25 MG, QD)

REACTIONS (13)
  - Condition aggravated [Not Recovered/Not Resolved]
  - Aggression [Unknown]
  - Coprolalia [Unknown]
  - Dyskinesia [Unknown]
  - Depressive symptom [Unknown]
  - Speech disorder [Unknown]
  - Drug intolerance [Unknown]
  - Affective disorder [Unknown]
  - School refusal [Unknown]
  - Tic [Not Recovered/Not Resolved]
  - Drug withdrawal syndrome [Unknown]
  - Tourette^s disorder [Unknown]
  - Drug abuse [Unknown]
